FAERS Safety Report 26132800 (Version 1)
Quarter: 2025Q4

REPORT INFORMATION
  Report Type: Report from Study
  Country: CO (occurrence: CO)
  Receive Date: 20251208
  Receipt Date: 20251208
  Transmission Date: 20260117
  Serious: Yes (Other)
  Sender: ABBVIE
  Company Number: CO-ABBVIE-6577318

PATIENT
  Age: 58 Year
  Sex: Male
  Weight: 89 kg

DRUGS (1)
  1. VENCLEXTA [Suspect]
     Active Substance: VENETOCLAX
     Indication: Chronic lymphocytic leukaemia
     Dosage: FORM STRENGTH: 100 MG BOTTLE
     Route: 048
     Dates: start: 20250717, end: 20250930

REACTIONS (6)
  - Chronic lymphocytic leukaemia [Not Recovered/Not Resolved]
  - Blood triglycerides increased [Unknown]
  - Bone pain [Unknown]
  - Respiratory tract congestion [Unknown]
  - Oropharyngeal pain [Unknown]
  - Laboratory test abnormal [Unknown]

NARRATIVE: CASE EVENT DATE: 20250101
